FAERS Safety Report 20946427 (Version 2)
Quarter: 2022Q3

REPORT INFORMATION
  Report Type: Report from Study
  Country: US (occurrence: US)
  Receive Date: 20220610
  Receipt Date: 20220718
  Transmission Date: 20221026
  Serious: Yes (Hospitalization, Other)
  Sender: FDA-Public Use
  Company Number: US-BAYER-2022A081044

PATIENT
  Age: 79 Year
  Sex: Male

DRUGS (17)
  1. XOFIGO [Suspect]
     Active Substance: RADIUM RA-223 DICHLORIDE
     Indication: Prostate cancer metastatic
     Dosage: 142.9 ?CI, UNK
     Dates: start: 20220330, end: 20220330
  2. XOFIGO [Suspect]
     Active Substance: RADIUM RA-223 DICHLORIDE
     Indication: Prostate cancer metastatic
     Dosage: 136.8 ?CI, UNK
     Dates: start: 20220427, end: 20220427
  3. BICALUTAMIDE [Concomitant]
     Active Substance: BICALUTAMIDE
     Dosage: 5 MG FOR 2 WEEKS
  4. DEXAMETHASONE [Concomitant]
     Active Substance: DEXAMETHASONE
     Dosage: 2 MG, QD
  5. OXYGEN [Concomitant]
     Active Substance: OXYGEN
     Dosage: UNK
  6. POTASSIUM CHLORIDE [Concomitant]
     Active Substance: POTASSIUM CHLORIDE
     Dosage: 40 MEQ, BID
     Route: 048
  7. TYLENOL [Concomitant]
     Active Substance: ACETAMINOPHEN
     Dosage: 650 MG, PRN
  8. ASPIRIN [Concomitant]
     Active Substance: ASPIRIN
     Dosage: 81 MG, QD
  9. HEPARIN [Concomitant]
     Active Substance: HEPARIN SODIUM
     Dosage: 5000 UNIT Q12H
     Route: 058
  10. METOPROLOL SUCCINATE [Concomitant]
     Active Substance: METOPROLOL SUCCINATE
     Dosage: 25 MG, QD
     Route: 048
  11. OMEPRAZOLE [Concomitant]
     Active Substance: OMEPRAZOLE
     Dosage: 20 MG, QD
     Route: 048
  12. SODIUM CHLORIDE [Concomitant]
     Active Substance: SODIUM CHLORIDE
     Dosage: 3 ML, PRN
     Route: 042
  13. ABIRATERONE [Concomitant]
     Active Substance: ABIRATERONE
     Dosage: 4 TAB DAILY
     Route: 048
  14. ZETIA [Concomitant]
     Active Substance: EZETIMIBE
     Dosage: 10 MG 1 TAB DAILY
     Route: 048
  15. PEPCID [Concomitant]
     Active Substance: FAMOTIDINE
     Dosage: 20 MG 1 TAB
     Route: 048
  16. SIMVASTATIN [Concomitant]
     Active Substance: SIMVASTATIN
     Dosage: 20 MG 1 TAB DAILY
     Route: 048
  17. GABAPENTIN [Concomitant]
     Active Substance: GABAPENTIN
     Dosage: 300 MG THREE TIMES A DAY

REACTIONS (20)
  - Prostate cancer metastatic [Unknown]
  - Hospitalisation [Unknown]
  - Asthenia [None]
  - Pain [None]
  - Pathological fracture [None]
  - Pulmonary oedema [None]
  - Interstitial lung disease [None]
  - Pneumonia [None]
  - Haemoglobin decreased [None]
  - Gait inability [None]
  - Oedema peripheral [None]
  - Back pain [Recovering/Resolving]
  - Eastern Cooperative Oncology Group performance status worsened [None]
  - Bedridden [None]
  - Bone pain [Recovering/Resolving]
  - Pain [None]
  - Dyspnoea exertional [None]
  - Cough [Recovered/Resolved]
  - Pain in extremity [None]
  - Decreased activity [None]
